FAERS Safety Report 24256857 (Version 1)
Quarter: 2024Q3

REPORT INFORMATION
  Report Type: Report from Study
  Country: AU (occurrence: AU)
  Receive Date: 20240828
  Receipt Date: 20240828
  Transmission Date: 20241017
  Serious: Yes (Other)
  Sender: ABBVIE
  Company Number: AU-ABBVIE-5892887

PATIENT
  Sex: Male

DRUGS (2)
  1. CARBIDOPA\LEVODOPA [Suspect]
     Active Substance: CARBIDOPA\LEVODOPA
     Indication: Parkinson^s disease
     Route: 050
     Dates: start: 20221109
  2. CARBIDOPA\LEVODOPA [Suspect]
     Active Substance: CARBIDOPA\LEVODOPA

REACTIONS (4)
  - Cholecystectomy [Unknown]
  - Diverticulum [Unknown]
  - Pancreatic atrophy [Unknown]
  - Device occlusion [Unknown]
